FAERS Safety Report 8816785 (Version 1)
Quarter: 2012Q4

REPORT INFORMATION
  Report Type: Spontaneous
  Country: GB (occurrence: None)
  Receive Date: 20121001
  Receipt Date: 20121001
  Transmission Date: 20130627
  Serious: Yes (Hospitalization)
  Sender: FDA-Public Use
  Company Number: 1433041

PATIENT
  Age: 74 Year
  Sex: Female

DRUGS (5)
  1. METHOTREXATE [Suspect]
     Indication: RHEUMATOID ARTHRITIS
  2. ASPIRIN [Suspect]
  3. PREDNISOLONE [Suspect]
  4. PREDNISOLONE [Suspect]
  5. ANTIBIOTICS [Concomitant]

REACTIONS (4)
  - Drug interaction [None]
  - Gallbladder perforation [None]
  - Haemorrhage [None]
  - Cholecystitis acute [None]
